FAERS Safety Report 17764325 (Version 1)
Quarter: 2020Q2

REPORT INFORMATION
  Report Type: Spontaneous
  Country: CN (occurrence: CN)
  Receive Date: 20200511
  Receipt Date: 20200511
  Transmission Date: 20200714
  Serious: Yes (Other)
  Sender: FDA-Public Use
  Company Number: CN-ROCHE-2587153

PATIENT
  Age: 55 Year
  Sex: Female

DRUGS (9)
  1. GLYCYRRHIZIN [GLYCYRRHIZA GLABRA] [Concomitant]
     Active Substance: GLYCYRRHIZA GLABRA\HERBALS
  2. LAPATINIB [Concomitant]
     Active Substance: LAPATINIB
  3. CEFMINOX SODIUM [Concomitant]
     Active Substance: CEFMINOX SODIUM
  4. OMEPRAZOLE. [Concomitant]
     Active Substance: OMEPRAZOLE
  5. CAPECITABINE. [Suspect]
     Active Substance: CAPECITABINE
     Indication: BREAST CANCER
     Route: 048
  6. KADCYLA [Suspect]
     Active Substance: ADO-TRASTUZUMAB EMTANSINE
     Indication: BREAST CANCER
     Route: 041
     Dates: start: 20200414
  7. ZOLEDRONIC ACID [Concomitant]
     Active Substance: ZOLEDRONIC ACID
  8. HERCEPTIN [Suspect]
     Active Substance: TRASTUZUMAB
     Indication: BREAST CANCER
     Route: 065
  9. LEVOFLOXACIN. [Concomitant]
     Active Substance: LEVOFLOXACIN

REACTIONS (8)
  - Haemoglobin decreased [Recovered/Resolved]
  - Cholelithiasis [Unknown]
  - Conjunctival haemorrhage [Unknown]
  - Infusion related reaction [Not Recovered/Not Resolved]
  - Platelet count decreased [Unknown]
  - Neutrophil percentage increased [Unknown]
  - Hepatic function abnormal [Unknown]
  - Cholecystitis chronic [Unknown]

NARRATIVE: CASE EVENT DATE: 20200423
